FAERS Safety Report 4367096-7 (Version None)
Quarter: 2004Q2

REPORT INFORMATION
  Report Type: 
  Country: None (occurrence: None)
  Receive Date: 20040528
  Receipt Date: 20040121
  Transmission Date: 20050107
  Serious: Yes (Other)
  Sender: FDA-Public Use
  Company Number: US-MERCK-0401USA01716

PATIENT
  Age: 38 Year
  Sex: Female
  Weight: 109 kg

DRUGS (9)
  1. [THERAPY UNSPECIFIED] [Concomitant]
     Route: 065
  2. ALBUTEROL [Concomitant]
     Indication: ASTHMA
     Route: 065
  3. PROVENTIL [Concomitant]
     Indication: ASTHMA
     Route: 055
  4. ANTIMICROBIAL (UNSPECIFIED) [Concomitant]
     Route: 065
  5. AMARYL [Concomitant]
     Route: 065
     Dates: end: 20021101
  6. GLIPIZIDE [Concomitant]
     Indication: DIABETES MELLITUS
     Route: 065
  7. GLUCOPHAGE [Concomitant]
     Indication: DIABETES MELLITUS
     Route: 065
     Dates: start: 20021101
  8. VIOXX [Suspect]
     Indication: ARTHRITIS
     Route: 048
     Dates: start: 20000101, end: 20021101
  9. VIOXX [Suspect]
     Indication: PAIN IN EXTREMITY
     Route: 048
     Dates: start: 20000101, end: 20021101

REACTIONS (23)
  - ABDOMINAL PAIN [None]
  - ARTERIAL OCCLUSIVE DISEASE [None]
  - ATHEROSCLEROSIS [None]
  - CARDIAC VALVE DISEASE [None]
  - CHEST DISCOMFORT [None]
  - CHEST PAIN [None]
  - CHRONIC FATIGUE SYNDROME [None]
  - CORONARY ARTERY DISEASE [None]
  - DEPRESSION [None]
  - DYSPEPSIA [None]
  - DYSPNOEA [None]
  - EMOTIONAL DISTRESS [None]
  - GASTRIC DISORDER [None]
  - GASTROOESOPHAGEAL REFLUX DISEASE [None]
  - GLAUCOMA [None]
  - HEADACHE [None]
  - HYPERCHOLESTEROLAEMIA [None]
  - HYPERHIDROSIS [None]
  - HYPERTENSION [None]
  - HYPOAESTHESIA [None]
  - MYOCARDIAL INFARCTION [None]
  - OEDEMA PERIPHERAL [None]
  - THROMBOSIS [None]
